FAERS Safety Report 7880083-7 (Version None)
Quarter: 2011Q4

REPORT INFORMATION
  Report Type: 
  Country: None (occurrence: None)
  Receive Date: 20111101
  Receipt Date: 20111017
  Transmission Date: 20120403
  Serious: Yes (Other)
  Sender: FDA-Public Use
  Company Number: JP-WATSON-2011-17166

PATIENT
  Age: 71 Year
  Sex: Male

DRUGS (4)
  1. CARBOPLATIN [Suspect]
     Indication: METASTATIC GASTRIC CANCER
     Dosage: 400 MG/M2, 4-WEEK CYCLES, COMPLETED 6 CYCLES
     Route: 065
  2. ETOPOSIDE [Suspect]
     Indication: METASTATIC GASTRIC CANCER
     Dosage: 70 MG/M2, 4-WEEK CYCLES, COMPLETED 6 CYCLES
     Route: 065
  3. FLUOROURACIL [Suspect]
     Indication: METASTATIC GASTRIC CANCER
     Dosage: 330 MG/M2, 4-WEEK CYCLES, COMPLETED 6 CYCLES
     Route: 065
  4. EPIRUBICIN [Suspect]
     Indication: METASTATIC GASTRIC CANCER
     Dosage: 27 MG/M2, 4-WEEK CYCLES, COMPLETED 6 CYCLES
     Route: 065

REACTIONS (4)
  - DECREASED APPETITE [None]
  - LEUKOPENIA [None]
  - NEUTROPENIA [None]
  - THROMBOCYTOPENIA [None]
